FAERS Safety Report 16176161 (Version 1)
Quarter: 2019Q2

REPORT INFORMATION
  Report Type: Spontaneous
  Country: US (occurrence: US)
  Receive Date: 20190409
  Receipt Date: 20190409
  Transmission Date: 20190711
  Serious: No
  Sender: FDA-Public Use
  Company Number: US-SA-2019SA094790

PATIENT
  Age: 55 Year
  Sex: Female

DRUGS (9)
  1. LOTEMAX [Concomitant]
     Active Substance: LOTEPREDNOL ETABONATE
  2. OMEPRAZOLE. [Concomitant]
     Active Substance: OMEPRAZOLE
  3. TACROLIMUS. [Concomitant]
     Active Substance: TACROLIMUS
  4. TRIAMCINOLONE [Concomitant]
     Active Substance: TRIAMCINOLONE
  5. CLONAZEPAM. [Concomitant]
     Active Substance: CLONAZEPAM
  6. DUPIXENT [Suspect]
     Active Substance: DUPILUMAB
     Indication: DERMATITIS ATOPIC
     Dosage: 300 MG, QOW
     Route: 058
  7. DOXYCYCLINE MONOHYDRATE [Concomitant]
     Active Substance: DOXYCYCLINE
  8. PAROXETINE. [Concomitant]
     Active Substance: PAROXETINE
  9. ROPINIROLE. [Concomitant]
     Active Substance: ROPINIROLE

REACTIONS (1)
  - Pigmentation disorder [Not Recovered/Not Resolved]
